FAERS Safety Report 4282203-2 (Version None)
Quarter: 2004Q1

REPORT INFORMATION
  Report Type: 
  Country: None (occurrence: None)
  Receive Date: 20040130
  Receipt Date: 20040119
  Transmission Date: 20041129
  Serious: Yes (Hospitalization)
  Sender: FDA-Public Use
  Company Number: US-GLAXOSMITHKLINE-A0495526A

PATIENT
  Age: 60 Year
  Sex: Female

DRUGS (16)
  1. AUGMENTIN '125' [Suspect]
     Indication: ILL-DEFINED DISORDER
     Route: 048
  2. AVANDIA [Suspect]
     Indication: DIABETES MELLITUS NON-INSULIN-DEPENDENT
     Dosage: 4MG PER DAY
     Route: 048
     Dates: start: 20030925
  3. ZOLOFT [Concomitant]
  4. PROMETHAZINE [Concomitant]
  5. OXYGEN [Concomitant]
  6. XANAX [Concomitant]
  7. IMDUR [Concomitant]
  8. PRAVACHOL [Concomitant]
  9. ASPIRIN [Concomitant]
  10. INDAPAMIDE [Concomitant]
  11. POTASSIUM CHLORIDE [Concomitant]
  12. LEVOXYL [Concomitant]
  13. ALBUTEROL [Concomitant]
     Route: 048
  14. NEXIUM [Concomitant]
  15. TRUSOPT [Concomitant]
  16. HYDROCODONE BITARTRATE [Concomitant]

REACTIONS (3)
  - BRONCHOSPASM [None]
  - FACE OEDEMA [None]
  - NAUSEA [None]
